FAERS Safety Report 6161392-9 (Version None)
Quarter: 2009Q2

REPORT INFORMATION
  Report Type: 
  Country: None (occurrence: None)
  Receive Date: 20090417
  Receipt Date: 20090417
  Transmission Date: 20091009
  Serious: Yes (Other)
  Sender: FDA-Public Use
  Company Number: None

PATIENT
  Age: 49 Year
  Sex: Male
  Weight: 74.6167 kg

DRUGS (2)
  1. CARVEDILOL [Suspect]
     Indication: CORONARY ARTERY DISEASE
     Dosage: 25 BID
     Dates: start: 20090301
  2. CARVEDILOL [Suspect]
     Indication: HYPERTENSION
     Dosage: 25 BID
     Dates: start: 20090301

REACTIONS (4)
  - DIZZINESS [None]
  - MEMORY IMPAIRMENT [None]
  - NAUSEA [None]
  - PRODUCT SUBSTITUTION ISSUE [None]
